FAERS Safety Report 7511570-9 (Version None)
Quarter: 2011Q2

REPORT INFORMATION
  Report Type: 
  Country: None (occurrence: None)
  Receive Date: 20110531
  Receipt Date: 20110526
  Transmission Date: 20111010
  Serious: Yes (Other)
  Sender: FDA-Public Use
  Company Number: US-PFIZER INC-2011098568

PATIENT
  Sex: Male

DRUGS (5)
  1. NARDIL [Suspect]
     Dosage: UNK
  2. PRIMIDONE [Concomitant]
     Indication: TREMOR
     Dosage: UNK
  3. PAXIL [Concomitant]
     Dosage: UNK
  4. ALPRAZOLAM [Suspect]
     Dosage: UNK
  5. SERZONE [Concomitant]
     Dosage: UNK

REACTIONS (5)
  - DRUG INEFFECTIVE [None]
  - FEELING DRUNK [None]
  - CHEST X-RAY ABNORMAL [None]
  - NEPHROLITHIASIS [None]
  - WEIGHT INCREASED [None]
